FAERS Safety Report 20009315 (Version 2)
Quarter: 2021Q4

REPORT INFORMATION
  Report Type: Spontaneous
  Country: JP (occurrence: JP)
  Receive Date: 20211028
  Receipt Date: 20211103
  Transmission Date: 20220303
  Serious: Yes (Death, Life-Threatening, Hospitalization)
  Sender: FDA-Public Use
  Company Number: JP-TEVA-2021-JP-1968974

PATIENT
  Age: 2 Day
  Sex: Female

DRUGS (8)
  1. MIDAZOLAM [Suspect]
     Active Substance: MIDAZOLAM
     Indication: Seizure
     Dosage: 2.4 MG/KG DAILY; CONTINUOUS
     Route: 041
  2. MIDAZOLAM [Suspect]
     Active Substance: MIDAZOLAM
     Indication: Seizure
     Dosage: 9.6 MG/KG DAILY; CONTINUOUS, MAXIMUM DOSE
     Route: 041
  3. PHENOBARBITAL [Suspect]
     Active Substance: PHENOBARBITAL
     Indication: Seizure
     Route: 042
  4. PHENOBARBITAL [Suspect]
     Active Substance: PHENOBARBITAL
     Indication: Seizure
     Route: 042
  5. PHENYTOIN [Suspect]
     Active Substance: PHENYTOIN
     Indication: Status epilepticus
     Dosage: 19200 MILLIGRAM DAILY; 200 MG/KG (CONTINUOUS)
     Route: 041
  6. PHENYTOIN [Suspect]
     Active Substance: PHENYTOIN
     Indication: Status epilepticus
     Dosage: 19200 MILLIGRAM DAILY; CONTINUOUS
     Route: 041
  7. CAFFEINE [Concomitant]
     Active Substance: CAFFEINE
     Indication: Product used for unknown indication
     Route: 065
  8. AMPICILLIN [Concomitant]
     Active Substance: AMPICILLIN
     Indication: Product used for unknown indication
     Route: 065

REACTIONS (16)
  - Drug ineffective [Fatal]
  - Overdose [Fatal]
  - Dose calculation error [Fatal]
  - Product prescribing issue [Fatal]
  - Toxicity to various agents [Fatal]
  - Hypotension [Fatal]
  - Cardiac arrest neonatal [Fatal]
  - Dilatation ventricular [Fatal]
  - Intraventricular haemorrhage [Fatal]
  - Subarachnoid haemorrhage [Fatal]
  - Lung opacity [Fatal]
  - Ascites [Fatal]
  - Abdominal distension [Fatal]
  - Conjunctival pallor [Fatal]
  - Haematoma [Fatal]
  - Cerebral disorder [Fatal]
